FAERS Safety Report 4684059-2 (Version None)
Quarter: 2005Q2

REPORT INFORMATION
  Report Type: 
  Country: None (occurrence: None)
  Receive Date: 20050607
  Receipt Date: 20050524
  Transmission Date: 20051028
  Serious: Yes (Other)
  Sender: FDA-Public Use
  Company Number: PHBS2005OM07922

PATIENT
  Weight: 2 kg

DRUGS (1)
  1. IMATINIB [Suspect]
     Route: 064

REACTIONS (3)
  - DRUG EXPOSURE DURING PREGNANCY [None]
  - PREGNANCY [None]
  - SMALL FOR DATES BABY [None]
